FAERS Safety Report 22285144 (Version 2)
Quarter: 2023Q2

REPORT INFORMATION
  Report Type: Spontaneous
  Country: SE (occurrence: SE)
  Receive Date: 20230504
  Receipt Date: 20230519
  Transmission Date: 20230722
  Serious: Yes (Hospitalization, Other)
  Sender: FDA-Public Use
  Company Number: SE-TEVA-2023-SE-2883429

PATIENT
  Age: 21 Year
  Sex: Male

DRUGS (21)
  1. CITALOPRAM [Suspect]
     Active Substance: CITALOPRAM HYDROBROMIDE
     Indication: Schizoaffective disorder
     Route: 065
     Dates: start: 1997
  2. VENLAFAXINE [Suspect]
     Active Substance: VENLAFAXINE HYDROCHLORIDE
     Indication: Schizoaffective disorder
     Dosage: 150 MG
     Route: 065
     Dates: start: 199803
  3. VENLAFAXINE [Suspect]
     Active Substance: VENLAFAXINE HYDROCHLORIDE
     Dosage: 150 MG
     Route: 065
     Dates: start: 200011
  4. RISPERIDONE [Suspect]
     Active Substance: RISPERIDONE
     Indication: Schizoaffective disorder
     Dosage: 3 MG
     Route: 065
     Dates: start: 199804
  5. RISPERIDONE [Suspect]
     Active Substance: RISPERIDONE
     Dosage: TAPERED 4 MG
     Route: 065
     Dates: start: 200002
  6. ZIPRASIDONE [Suspect]
     Active Substance: ZIPRASIDONE
     Indication: Schizoaffective disorder
     Dosage: 80 MG
     Route: 065
  7. CLOZAPINE [Suspect]
     Active Substance: CLOZAPINE
     Indication: Schizoaffective disorder
     Dosage: INCREASED THE DOSE
     Route: 065
     Dates: start: 200110
  8. CLOZAPINE [Suspect]
     Active Substance: CLOZAPINE
     Dosage: INCREASED THE DOSE 500 MG
     Route: 065
     Dates: start: 200112
  9. CLOZAPINE [Suspect]
     Active Substance: CLOZAPINE
     Dosage: INCREASED THE DOSE 600 MG
     Route: 065
     Dates: start: 200207
  10. CLOZAPINE [Suspect]
     Active Substance: CLOZAPINE
     Dosage: DECREASED THE DOSE 650 MG
     Route: 065
     Dates: start: 200404
  11. ZOLPIDEM [Suspect]
     Active Substance: ZOLPIDEM TARTRATE
     Indication: Intentional overdose
     Dosage: 7.5 MG
     Route: 065
     Dates: start: 199801
  12. NEFAZODONE [Suspect]
     Active Substance: NEFAZODONE
     Indication: Schizoaffective disorder
     Dosage: 100 MG
     Route: 065
     Dates: start: 199801
  13. NEFAZODONE [Suspect]
     Active Substance: NEFAZODONE
     Dosage: 200 MG
     Route: 065
     Dates: start: 199801
  14. NEFAZODONE [Suspect]
     Active Substance: NEFAZODONE
     Dosage: 400 MG
     Route: 065
     Dates: start: 199802
  15. CAFFEINE [Suspect]
     Active Substance: CAFFEINE
     Indication: Intentional overdose
     Route: 065
  16. LITHIUM [Suspect]
     Active Substance: LITHIUM
     Indication: Schizoaffective disorder
     Dosage: 6 X 42 MG; MONOTHERAPY
     Route: 065
     Dates: start: 199811
  17. LITHIUM [Suspect]
     Active Substance: LITHIUM
     Dosage: 6 X 42 MG
     Route: 065
     Dates: start: 200002, end: 200012
  18. REBOXETINE [Suspect]
     Active Substance: REBOXETINE
     Indication: Schizoaffective disorder
     Dosage: 6 MG
     Route: 065
     Dates: start: 200103
  19. DESMOPRESSIN [Suspect]
     Active Substance: DESMOPRESSIN
     Indication: Enuresis
     Dosage: 0.2 MG
     Route: 065
     Dates: start: 200603
  20. VALPROATE [Concomitant]
     Active Substance: VALPROIC ACID
     Indication: Schizoaffective disorder
     Dosage: 80 MG
     Route: 065
  21. PERPHENAZINE [Concomitant]
     Active Substance: PERPHENAZINE
     Indication: Schizoaffective disorder
     Dosage: AND EVENTUALLY TAPERED 24 MG
     Route: 065

REACTIONS (7)
  - Drug ineffective [Unknown]
  - Constipation [Recovered/Resolved]
  - Salivary hypersecretion [Recovering/Resolving]
  - Enuresis [Recovering/Resolving]
  - Intentional product misuse [Unknown]
  - Treatment noncompliance [Unknown]
  - Intentional overdose [Unknown]
